FAERS Safety Report 11953724 (Version 1)
Quarter: 2016Q1

REPORT INFORMATION
  Report Type: Spontaneous
  Country: US (occurrence: US)
  Receive Date: 20160126
  Receipt Date: 20160126
  Transmission Date: 20160526
  Serious: No
  Sender: FDA-Public Use
  Company Number: US-BAUSCH-BL-2015-013116

PATIENT
  Age: 48 Year
  Sex: Female

DRUGS (4)
  1. VITRASE [Suspect]
     Active Substance: HYALURONIDASE, OVINE
     Indication: SKIN DISORDER
     Dates: start: 20150421, end: 20150421
  2. VITRASE [Suspect]
     Active Substance: HYALURONIDASE, OVINE
     Dates: start: 201504, end: 201504
  3. MUTIVITAMINS [Concomitant]
     Indication: VITAMIN SUPPLEMENTATION
  4. L-TYROSINE [Concomitant]
     Indication: SUPPLEMENTATION THERAPY

REACTIONS (2)
  - Eyelid oedema [Not Recovered/Not Resolved]
  - Drug ineffective [Unknown]

NARRATIVE: CASE EVENT DATE: 20150422
